FAERS Safety Report 24997967 (Version 1)
Quarter: 2025Q1

REPORT INFORMATION
  Report Type: Spontaneous
  Country: US (occurrence: US)
  Receive Date: 20250222
  Receipt Date: 20250222
  Transmission Date: 20250409
  Serious: No
  Sender: SANOFI AVENTIS
  Company Number: US-SA-2025SA041490

PATIENT
  Sex: Female

DRUGS (29)
  1. ARAVA [Suspect]
     Active Substance: LEFLUNOMIDE
  2. ACTEMRA [Concomitant]
     Active Substance: TOCILIZUMAB
  3. ORENCIA [Concomitant]
     Active Substance: ABATACEPT
  4. ENBREL [Concomitant]
     Active Substance: ETANERCEPT
  5. REMICADE [Concomitant]
     Active Substance: INFLIXIMAB
  6. RASUVO [Concomitant]
     Active Substance: METHOTREXATE SODIUM
  7. KEVZARA [Concomitant]
     Active Substance: SARILUMAB
  8. OLUMIANT [Concomitant]
     Active Substance: BARICITINIB
  9. SIMPONI [Concomitant]
     Active Substance: GOLIMUMAB
  10. HUMIRA [Concomitant]
     Active Substance: ADALIMUMAB
  11. DULOXETINE [Concomitant]
     Active Substance: DULOXETINE
  12. LIDOCAINE [Concomitant]
     Active Substance: LIDOCAINE
  13. HYDROXYCHLOROQUINE [Concomitant]
     Active Substance: HYDROXYCHLOROQUINE
  14. DICLOFENAC [Concomitant]
     Active Substance: DICLOFENAC
  15. SULFASALAZINE [Concomitant]
     Active Substance: SULFASALAZINE
  16. MIRALAX [Concomitant]
     Active Substance: POLYETHYLENE GLYCOL 3350
  17. VITAMIN D3 [Concomitant]
     Active Substance: CHOLECALCIFEROL
  18. TRAMADOL [Concomitant]
     Active Substance: TRAMADOL
  19. FAMOTIDINE [Concomitant]
     Active Substance: FAMOTIDINE
  20. HYDROXYZINE HYDROCHLORIDE [Concomitant]
     Active Substance: HYDROXYZINE HYDROCHLORIDE
  21. ACETAMINOPHEN [Concomitant]
     Active Substance: ACETAMINOPHEN
  22. METFORMIN [Concomitant]
     Active Substance: METFORMIN HYDROCHLORIDE
  23. ASPIRIN [Concomitant]
     Active Substance: ASPIRIN
  24. PRILOSEC [Concomitant]
     Active Substance: OMEPRAZOLE MAGNESIUM
  25. ZOLOFT [Concomitant]
     Active Substance: SERTRALINE HYDROCHLORIDE
  26. BENAZEPRIL [Concomitant]
     Active Substance: BENAZEPRIL HYDROCHLORIDE
  27. OSCAL [Concomitant]
     Active Substance: CALCIUM CARBONATE
  28. CYCLIZINE [Concomitant]
     Active Substance: CYCLIZINE
  29. CRESTOR [Concomitant]
     Active Substance: ROSUVASTATIN CALCIUM

REACTIONS (1)
  - Influenza like illness [Unknown]
